FAERS Safety Report 5593946-2 (Version None)
Quarter: 2008Q1

REPORT INFORMATION
  Report Type: 
  Country: None (occurrence: None)
  Receive Date: 20080114
  Receipt Date: 20071228
  Transmission Date: 20080703
  Serious: Yes (Other)
  Sender: FDA-Public Use
  Company Number: 2006107970

PATIENT
  Age: 53 Year
  Sex: Male
  Weight: 95 kg

DRUGS (3)
  1. MACUGEN [Suspect]
     Indication: MACULAR DEGENERATION
     Dosage: 0.3 MG (0.3 MG, ONE TIME), INTRAVITREOUS
     Dates: start: 20060904, end: 20060904
  2. DRUG, UNSPECIFIED (DRUG, UNSPECIFIED) [Concomitant]
  3. LEVOTHYROXINE SODIUM [Concomitant]

REACTIONS (10)
  - BLINDNESS TRANSIENT [None]
  - EYE PAIN [None]
  - EYE SWELLING [None]
  - HYPERAEMIA [None]
  - INCORRECT ROUTE OF DRUG ADMINISTRATION [None]
  - INJECTION SITE REACTION [None]
  - INTRAOCULAR PRESSURE INCREASED [None]
  - SWELLING [None]
  - VISION BLURRED [None]
  - VISUAL ACUITY REDUCED [None]
